FAERS Safety Report 13858849 (Version 3)
Quarter: 2017Q4

REPORT INFORMATION
  Report Type: Report from Study
  Country: JP (occurrence: JP)
  Receive Date: 20170811
  Receipt Date: 20171117
  Transmission Date: 20180320
  Serious: No
  Sender: FDA-Public Use
  Company Number: JP-ACTELION-A-CH2017-157705

PATIENT
  Age: 38 Year
  Sex: Male

DRUGS (9)
  1. URINORM [Concomitant]
     Active Substance: BENZBROMARONE
  2. ASPARA K [Concomitant]
     Active Substance: POTASSIUM ASPARTATE
  3. SPIRONOLACTONE. [Concomitant]
     Active Substance: SPIRONOLACTONE
  4. DIART [Concomitant]
     Active Substance: AZOSEMIDE
  5. LOPEMIN [Concomitant]
     Active Substance: LOPERAMIDE HYDROCHLORIDE
  6. OPSUMIT [Suspect]
     Active Substance: MACITENTAN
     Indication: PULMONARY ARTERIAL HYPERTENSION
     Dosage: 10 MG, OD
     Route: 048
     Dates: start: 20150730
  7. LASIX [Concomitant]
     Active Substance: FUROSEMIDE
  8. FLOLAN [Suspect]
     Active Substance: EPOPROSTENOL SODIUM
     Indication: PULMONARY ARTERIAL HYPERTENSION
     Dosage: 167 NG/KG, PER MIN
     Route: 042
     Dates: start: 201006
  9. OXYGEN. [Concomitant]
     Active Substance: OXYGEN

REACTIONS (3)
  - Hyperthyroidism [Recovering/Resolving]
  - Epistaxis [Recovering/Resolving]
  - Haemorrhagic anaemia [Recovering/Resolving]

NARRATIVE: CASE EVENT DATE: 201510
